FAERS Safety Report 15482038 (Version 1)
Quarter: 2018Q4

REPORT INFORMATION
  Report Type: Spontaneous
  Country: FR (occurrence: FR)
  Receive Date: 20181010
  Receipt Date: 20181010
  Transmission Date: 20190205
  Serious: Yes (Other)
  Sender: FDA-Public Use
  Company Number: FR-JNJFOC-20180829416

PATIENT
  Age: 34 Year
  Sex: Female
  Weight: 88 kg

DRUGS (4)
  1. CORTANCYL [Suspect]
     Active Substance: PREDNISONE
     Indication: UVEITIS
     Route: 065
     Dates: start: 2011
  2. CORTANCYL [Suspect]
     Active Substance: PREDNISONE
     Indication: ANKYLOSING SPONDYLITIS
     Route: 065
     Dates: start: 2011
  3. REMICADE [Suspect]
     Active Substance: INFLIXIMAB
     Indication: ANKYLOSING SPONDYLITIS
     Route: 042
     Dates: start: 2011
  4. REMICADE [Suspect]
     Active Substance: INFLIXIMAB
     Indication: UVEITIS
     Route: 042
     Dates: start: 2011

REACTIONS (4)
  - Off label use [Unknown]
  - Exposure during pregnancy [Recovered/Resolved]
  - Gestational diabetes [Unknown]
  - Product use issue [Unknown]

NARRATIVE: CASE EVENT DATE: 2011
